FAERS Safety Report 4598165-4 (Version None)
Quarter: 2005Q1

REPORT INFORMATION
  Report Type: 
  Country: None (occurrence: None)
  Receive Date: 20050301
  Receipt Date: 20050301
  Transmission Date: 20050727
  Serious: Yes (Hospitalization)
  Sender: FDA-Public Use
  Company Number: None

PATIENT
  Age: 56 Year
  Sex: Male
  Weight: 58.0604 kg

DRUGS (9)
  1. CELLCEPT [Suspect]
     Indication: LIVER TRANSPLANT
     Dosage: 1 GRAM BID
     Dates: start: 20040401
  2. ATENOLOL [Concomitant]
  3. TACROLIMUS [Concomitant]
  4. MS CONTIN [Concomitant]
  5. GLYBURIDE [Concomitant]
  6. BACTRIM DS [Concomitant]
  7. CALCIUM/VITAMIN D [Concomitant]
  8. LAMIVUDINE [Concomitant]
  9. OMEPRAZOLE [Concomitant]

REACTIONS (10)
  - ABDOMINAL PAIN UPPER [None]
  - ABNORMAL FAECES [None]
  - ANOREXIA [None]
  - BURNING SENSATION [None]
  - DIARRHOEA [None]
  - DUODENITIS [None]
  - GASTRITIS [None]
  - NAUSEA [None]
  - ULCER [None]
  - VOMITING [None]
